FAERS Safety Report 23346331 (Version 1)
Quarter: 2023Q4

REPORT INFORMATION
  Report Type: Spontaneous
  Country: None (occurrence: US)
  Receive Date: 20231228
  Receipt Date: 20231228
  Transmission Date: 20240110
  Serious: Yes (Other)
  Sender: FDA-Public Use
  Company Number: US-The Proactiv LLC-2149853

PATIENT
  Age: 38 Year
  Sex: Female

DRUGS (4)
  1. PROACTIV SOLUTION RENEWING CLEANSER [Suspect]
     Active Substance: BENZOYL PEROXIDE
     Route: 061
     Dates: start: 20220512
  2. PROACTIV SOLUTION REPAIRING TREATMENT [Suspect]
     Active Substance: BENZOYL PEROXIDE
     Route: 061
     Dates: start: 20220512
  3. COSMETICS [Suspect]
     Active Substance: COSMETICS
     Route: 061
     Dates: start: 20220512
  4. COSMETICS [Suspect]
     Active Substance: COSMETICS
     Route: 061
     Dates: start: 20220512

REACTIONS (4)
  - Neoplasm malignant [Unknown]
  - Drug ineffective [Unknown]
  - Dry skin [Recovering/Resolving]
  - Skin exfoliation [Recovering/Resolving]
